FAERS Safety Report 21464001 (Version 2)
Quarter: 2022Q4

REPORT INFORMATION
  Report Type: Report from Study
  Country: MX (occurrence: MX)
  Receive Date: 20221017
  Receipt Date: 20221026
  Transmission Date: 20230113
  Serious: Yes (Other)
  Sender: FDA-Public Use
  Company Number: MX-BoehringerIngelheim-2021-BI-133232

PATIENT
  Age: 66 Year
  Sex: Male
  Weight: 73 kg

DRUGS (12)
  1. OFEV [Suspect]
     Active Substance: NINTEDANIB
     Indication: Idiopathic pulmonary fibrosis
     Dosage: 150 MG EVERY 12 HOURS
     Route: 048
     Dates: start: 20210801, end: 20220122
  2. OFEV [Suspect]
     Active Substance: NINTEDANIB
     Dosage: 1 EVERY 12 HOURS
     Route: 048
     Dates: start: 20210819
  3. OFEV [Suspect]
     Active Substance: NINTEDANIB
     Dates: start: 20220712, end: 20220715
  4. OFEV [Suspect]
     Active Substance: NINTEDANIB
     Route: 048
  5. OFEV [Suspect]
     Active Substance: NINTEDANIB
     Route: 048
     Dates: start: 202204
  6. OFEV [Suspect]
     Active Substance: NINTEDANIB
     Route: 048
     Dates: start: 202108, end: 20211204
  7. OFEV [Suspect]
     Active Substance: NINTEDANIB
     Route: 048
     Dates: start: 20211109
  8. OFEV [Suspect]
     Active Substance: NINTEDANIB
     Dosage: 150 MG, 2 TIMES PER DAY
     Route: 048
     Dates: start: 20210701
  9. PREDNISONE [Concomitant]
     Active Substance: PREDNISONE
     Indication: Product used for unknown indication
  10. OMEPRAZOLE [Concomitant]
     Active Substance: OMEPRAZOLE
     Indication: Product used for unknown indication
  11. FOLIC ACID [Concomitant]
     Active Substance: FOLIC ACID
     Indication: Product used for unknown indication
  12. ALOIN\ATROPINE SULFATE\CATHINE\DIAZEPAM\LIOTHYRONINE [Concomitant]
     Active Substance: ALOIN\ATROPINE SULFATE\CATHINE\DIAZEPAM\LIOTHYRONINE
     Indication: Product used for unknown indication

REACTIONS (46)
  - Nephrolithiasis [Unknown]
  - Idiopathic pulmonary fibrosis [Unknown]
  - Weight increased [Recovered/Resolved]
  - Body height decreased [Unknown]
  - Hepatitis [Recovered/Resolved]
  - Blood cholesterol increased [Recovered/Resolved]
  - Weight decreased [Recovered/Resolved]
  - Diarrhoea [Recovered/Resolved]
  - Diarrhoea [Recovered/Resolved]
  - Diarrhoea [Recovered/Resolved]
  - Diarrhoea [Recovered/Resolved]
  - Decreased appetite [Recovered/Resolved]
  - Headache [Not Recovered/Not Resolved]
  - Productive cough [Not Recovered/Not Resolved]
  - Arthralgia [Not Recovered/Not Resolved]
  - Diarrhoea [Recovered/Resolved]
  - Decreased appetite [Recovered/Resolved]
  - Diarrhoea [Recovered/Resolved]
  - Decreased appetite [Recovered/Resolved]
  - Product dose omission issue [Unknown]
  - Diarrhoea [Not Recovered/Not Resolved]
  - Weight decreased [Recovered/Resolved]
  - Faeces discoloured [Not Recovered/Not Resolved]
  - Abnormal faeces [Not Recovered/Not Resolved]
  - Increased appetite [Unknown]
  - Cough [Unknown]
  - Cyanosis [Unknown]
  - Loss of personal independence in daily activities [Unknown]
  - Arthralgia [Unknown]
  - Stress [Unknown]
  - Anxiety [Unknown]
  - Diarrhoea [Recovering/Resolving]
  - Secretion discharge [Not Recovered/Not Resolved]
  - Nasal dryness [Recovered/Resolved]
  - Headache [Recovering/Resolving]
  - Fatigue [Not Recovered/Not Resolved]
  - Dyspnoea exertional [Unknown]
  - Anxiety [Unknown]
  - Diarrhoea [Recovered/Resolved]
  - Diarrhoea [Recovered/Resolved]
  - Diarrhoea [Recovered/Resolved]
  - Weight increased [Recovered/Resolved]
  - Taste disorder [Unknown]
  - Overweight [Recovered/Resolved]
  - Cough [Not Recovered/Not Resolved]
  - Ageusia [Unknown]

NARRATIVE: CASE EVENT DATE: 20210901
